FAERS Safety Report 9975913 (Version 1)
Quarter: 2014Q1

REPORT INFORMATION
  Report Type: Spontaneous
  Country: JP (occurrence: JP)
  Receive Date: 20140306
  Receipt Date: 20140306
  Transmission Date: 20141002
  Serious: Yes (Hospitalization, Other)
  Sender: FDA-Public Use
  Company Number: CHPA2014JP003489

PATIENT
  Age: 63 Year
  Sex: Female
  Weight: 61 kg

DRUGS (2)
  1. LANSOPRAZOLE [Suspect]
     Indication: ABDOMINAL DISCOMFORT
     Dosage: 15 MG, QD
     Route: 065
  2. LANSOPRAZOLE [Suspect]
     Indication: OFF LABEL USE

REACTIONS (6)
  - Colitis microscopic [Recovering/Resolving]
  - Diarrhoea [Recovering/Resolving]
  - Generalised oedema [Recovering/Resolving]
  - Protein total decreased [Recovering/Resolving]
  - Protein-losing gastroenteropathy [Recovering/Resolving]
  - Incorrect drug administration duration [Unknown]
